FAERS Safety Report 16181939 (Version 1)
Quarter: 2019Q2

REPORT INFORMATION
  Report Type: Spontaneous
  Country: BE (occurrence: BE)
  Receive Date: 20190410
  Receipt Date: 20190410
  Transmission Date: 20190711
  Serious: Yes (Death, Hospitalization, Other)
  Sender: FDA-Public Use
  Company Number: BE-PFIZER INC-2019150114

PATIENT
  Age: 40 Year
  Sex: Female

DRUGS (11)
  1. VITAMIN B12 [HYDROXOCOBALAMIN] [Concomitant]
     Active Substance: HYDROXOCOBALAMIN
     Dosage: 1X EVERY 2 MONTHS
  2. METHYLPREDNISOLONE. [Suspect]
     Active Substance: METHYLPREDNISOLONE
     Dosage: UNK
     Dates: start: 20190125
  3. FURADANTINE [Concomitant]
     Active Substance: NITROFURANTOIN
     Dosage: 50 MG, 1X/DAY
  4. OMEPRAZOLE. [Concomitant]
     Active Substance: OMEPRAZOLE
     Dosage: 20 MG, 1X/DAY
  5. FERRICURE [POLYSACCHARIDE-IRON COMPLEX] [Concomitant]
  6. GABAPENTIN. [Concomitant]
     Active Substance: GABAPENTIN
     Dosage: 600 MG, 3X/DAY (EVERY 8 HOURS)
  7. VITAMIN D [ERGOCALCIFEROL] [Concomitant]
     Active Substance: ERGOCALCIFEROL
  8. D-CURE [Concomitant]
     Active Substance: CHOLECALCIFEROL
  9. MEDROL [Concomitant]
     Active Substance: METHYLPREDNISOLONE
  10. LEMTRADA [Suspect]
     Active Substance: ALEMTUZUMAB
     Indication: RELAPSING-REMITTING MULTIPLE SCLEROSIS
     Dosage: UNK
     Route: 041
     Dates: start: 20190128, end: 20190128
  11. TRAMADOL. [Concomitant]
     Active Substance: TRAMADOL

REACTIONS (20)
  - Dyspnoea [Fatal]
  - Headache [Unknown]
  - Rash [Unknown]
  - Nervousness [Unknown]
  - Erythema [Unknown]
  - Pyrexia [Unknown]
  - Weight increased [Unknown]
  - Oedema [Unknown]
  - Fluid retention [Unknown]
  - Condition aggravated [Unknown]
  - Myalgia [Unknown]
  - Oxygen saturation decreased [Unknown]
  - Cyanosis [Unknown]
  - Insomnia [Unknown]
  - Bronchospasm [Fatal]
  - Neutrophil count increased [Unknown]
  - Pulmonary embolism [Fatal]
  - Paresis [Unknown]
  - Blood glucose increased [Unknown]
  - Palpitations [Unknown]

NARRATIVE: CASE EVENT DATE: 201901
